FAERS Safety Report 5067546-7 (Version None)
Quarter: 2006Q3

REPORT INFORMATION
  Report Type: 
  Country: None (occurrence: None)
  Receive Date: 20060727
  Receipt Date: 20060713
  Transmission Date: 20061208
  Serious: Yes (Hospitalization)
  Sender: FDA-Public Use
  Company Number: S06-SWI-02898-01

PATIENT
  Age: 36 Year
  Sex: Male

DRUGS (6)
  1. CITALOPRAM HYDROBROMIDE [Suspect]
     Dosage: 3 TABLET ONCE PO
     Route: 048
     Dates: start: 20051231, end: 20051231
  2. CITALOPRAM HYDROBROMIDE [Suspect]
  3. OXAZEPAM [Concomitant]
     Dosage: 4 TABLET ONCE PO
     Route: 048
     Dates: start: 20051231, end: 20051231
  4. OXAZEPAM [Suspect]
  5. LORAZEPAM [Suspect]
     Dosage: 10 TABLET ONCE PO
     Route: 048
     Dates: start: 20051231, end: 20051231
  6. LORAZEPAM [Suspect]

REACTIONS (3)
  - EUPHORIC MOOD [None]
  - MULTIPLE DRUG OVERDOSE INTENTIONAL [None]
  - SUICIDAL IDEATION [None]
